FAERS Safety Report 6681081-1 (Version None)
Quarter: 2010Q2

REPORT INFORMATION
  Report Type: 
  Country: None (occurrence: None)
  Receive Date: 20100414
  Receipt Date: 20100407
  Transmission Date: 20101027
  Serious: Yes (Other)
  Sender: FDA-Public Use
  Company Number: US-AMGEN-QUU395609

PATIENT
  Sex: Male
  Weight: 133 kg

DRUGS (10)
  1. NPLATE [Suspect]
     Indication: IDIOPATHIC THROMBOCYTOPENIC PURPURA
     Route: 058
     Dates: start: 20081029, end: 20090909
  2. METOPROLOL TARTRATE [Concomitant]
  3. COZAAR [Concomitant]
  4. FLOMAX [Concomitant]
  5. ISOSORBIDE DINITRATE [Concomitant]
  6. OMEPRAZOLE [Concomitant]
  7. PROTONIX [Concomitant]
  8. CELEXA [Concomitant]
  9. OXYCODONE [Concomitant]
  10. PLATELETS [Concomitant]
     Dates: start: 20091028

REACTIONS (4)
  - CHILLS [None]
  - MALAISE [None]
  - NAUSEA [None]
  - THERAPEUTIC RESPONSE DECREASED [None]
